FAERS Safety Report 22625186 (Version 1)
Quarter: 2023Q2

REPORT INFORMATION
  Report Type: Spontaneous
  Country: FR (occurrence: FR)
  Receive Date: 20230621
  Receipt Date: 20230621
  Transmission Date: 20230721
  Serious: Yes (Disabling, Other)
  Sender: FDA-Public Use
  Company Number: None

PATIENT
  Age: 8 Year
  Sex: Male
  Weight: 22.1 kg

DRUGS (4)
  1. METHYLPHENIDATE [Suspect]
     Active Substance: METHYLPHENIDATE
     Indication: Product used for unknown indication
     Dosage: 5 MILLIGRAM, QD
     Route: 048
     Dates: start: 202111
  2. LAMIVUDINE [Suspect]
     Active Substance: LAMIVUDINE
     Indication: Congenital HIV infection
     Dosage: UNK
     Route: 048
     Dates: start: 2018
  3. RALTEGRAVIR [Suspect]
     Active Substance: RALTEGRAVIR
     Indication: Congenital HIV infection
     Dosage: UNK
     Route: 048
     Dates: start: 2018
  4. ZIDOVUDINE [Suspect]
     Active Substance: ZIDOVUDINE
     Indication: Congenital HIV infection
     Dosage: UNK
     Route: 048
     Dates: start: 2018

REACTIONS (1)
  - Optic atrophy [Not Recovered/Not Resolved]

NARRATIVE: CASE EVENT DATE: 20211101
